FAERS Safety Report 9219454 (Version 1)
Quarter: 2013Q1

REPORT INFORMATION
  Report Type: Spontaneous
  Country: US (occurrence: None)
  Receive Date: 20120828
  Receipt Date: 20120828
  Transmission Date: 20140127
  Serious: No
  Sender: FDA-Public Use
  Company Number: 2012BH003724

PATIENT
  Age: 47 Year
  Sex: Female
  Weight: 56.5 kg

DRUGS (5)
  1. KLOVIG LIQUID 10 % SOLUTION FOR INFUSION VIAL GLASS (IMMUNOGLOBULIN, NORMAL HUMAN)(SOLUTION FOR INFUSION) [Suspect]
     Indication: IMMUNODEFICIENCY COMMON VARIABLE
     Dosage: 3.6667 GM (55 NGM, 2 IN 1 M0, IV
     Route: 042
     Dates: start: 20111021, end: 20120113
  2. MOMETASONE FUROATE (MOMETASONE FUROATE) UKNOWN [Concomitant]
  3. ALPARAZOLAM (ALAPRAZOLAM) (UKNOWN) [Concomitant]
  4. ACETAMINOPHEN(PARACETAMOL)(UKNOWN) [Concomitant]
  5. DIPHENHYDRAMINE(DIPHENHYDRAMINE)(UKNOWN) [Concomitant]

REACTIONS (6)
  - Jugular vein thrombosis [None]
  - Infusion site irritation [None]
  - Infusion site pain [None]
  - Pain in extremity [None]
  - Infusion site swelling [None]
  - Infusion site erythema [None]
